FAERS Safety Report 13948386 (Version 1)
Quarter: 2017Q3

REPORT INFORMATION
  Report Type: Spontaneous
  Country: ES (occurrence: ES)
  Receive Date: 20170908
  Receipt Date: 20170908
  Transmission Date: 20171128
  Serious: Yes (Hospitalization, Other)
  Sender: FDA-Public Use
  Company Number: ES-ASTELLAS-2017US035608

PATIENT
  Age: 4 Year
  Sex: Male
  Weight: 14 kg

DRUGS (2)
  1. TACROLIMUS. [Suspect]
     Active Substance: TACROLIMUS
     Indication: INTESTINAL TRANSPLANT
     Dosage: UNK, UNKNOWN FREQ.
     Route: 048
  2. THYMOGLOBULIN [Concomitant]
     Active Substance: LAPINE T-LYMPHOCYTE IMMUNE GLOBULIN
     Indication: INTESTINAL TRANSPLANT
     Dosage: UNK, UNKNOWN FREQ. (0, 3, 7, AND 30 DAYS POST-TRANSPLANTATION)
     Route: 065

REACTIONS (13)
  - Cytomegalovirus infection [Recovering/Resolving]
  - Intestinal haematoma [Unknown]
  - Epstein-Barr virus infection [Unknown]
  - Intestine transplant rejection [Recovering/Resolving]
  - Off label use [Unknown]
  - Encapsulating peritoneal sclerosis [Unknown]
  - Device related sepsis [Unknown]
  - Intestine transplant rejection [Unknown]
  - Electrolyte imbalance [Unknown]
  - Wound dehiscence [Unknown]
  - Viral infection [Unknown]
  - General physical health deterioration [Unknown]
  - Candida infection [Unknown]
